FAERS Safety Report 8112624-9 (Version None)
Quarter: 2012Q1

REPORT INFORMATION
  Report Type: 
  Country: None (occurrence: None)
  Receive Date: 20120131
  Receipt Date: 20120118
  Transmission Date: 20120608
  Serious: Yes (Hospitalization, Other)
  Sender: FDA-Public Use
  Company Number: 2012MA000884

PATIENT
  Sex: Female

DRUGS (11)
  1. ASCORBIC ACID [Concomitant]
  2. FOLIC ACID [Concomitant]
  3. LEVOTHYROXINE SODIUM [Concomitant]
  4. CLONIDINE [Concomitant]
  5. DIGOXIN [Suspect]
     Dosage: 0.25 MG;QD;PO
     Route: 048
     Dates: start: 20060411, end: 20081006
  6. ATENOLOL [Concomitant]
  7. SYNTHROID [Concomitant]
  8. IRON SULFATETHIAMIN COMPOUND TAB [Concomitant]
  9. ESTRADIOL [Concomitant]
  10. SULFADIAZINE [Concomitant]
  11. COUMADIN [Concomitant]

REACTIONS (15)
  - SYNCOPE [None]
  - MYOCARDIAL INFARCTION [None]
  - PYREXIA [None]
  - BLOOD GLUCOSE INCREASED [None]
  - MYOCARDIAL ISCHAEMIA [None]
  - WHITE BLOOD CELL COUNT INCREASED [None]
  - ATRIAL FIBRILLATION [None]
  - NAUSEA [None]
  - CARDIAC MURMUR [None]
  - CONDUCTION DISORDER [None]
  - ABDOMINAL TENDERNESS [None]
  - VOMITING [None]
  - DIARRHOEA [None]
  - BRADYCARDIA [None]
  - ELECTROCARDIOGRAM ST-T CHANGE [None]
